FAERS Safety Report 7493914-X (Version None)
Quarter: 2011Q2

REPORT INFORMATION
  Report Type: 
  Country: None (occurrence: None)
  Receive Date: 20110520
  Receipt Date: 20110511
  Transmission Date: 20111010
  Serious: Yes (Other)
  Sender: FDA-Public Use
  Company Number: JP-ROCHE-777770

PATIENT
  Age: 38 Year
  Sex: Female

DRUGS (4)
  1. AVASTIN [Suspect]
     Indication: GLAUCOMA
     Dosage: DOSAGE IS UNCERTAIN., INTRAOCULAR  ROUTE
     Route: 065
     Dates: start: 20090325, end: 20090325
  2. INSULIN [Concomitant]
     Route: 065
  3. BETAMETHASONE [Concomitant]
     Route: 047
     Dates: start: 20090401
  4. AVASTIN [Suspect]
     Dosage: DOSAGE IS UNCERTAIN.
     Route: 065
     Dates: start: 20090101, end: 20090101

REACTIONS (3)
  - INTRAOCULAR PRESSURE INCREASED [None]
  - HYPHAEMA [None]
  - OBSTRUCTION [None]
